FAERS Safety Report 5353893-8 (Version None)
Quarter: 2007Q2

REPORT INFORMATION
  Report Type: 
  Country: None (occurrence: None)
  Receive Date: 20070518
  Receipt Date: 20070219
  Transmission Date: 20071010
  Serious: No
  Sender: FDA-Public Use
  Company Number: TPA2006A01480

PATIENT
  Age: 54 Year
  Sex: Female
  Weight: 116.1208 kg

DRUGS (17)
  1. ROZEREM [Suspect]
     Dosage: PER ORAL
     Route: 048
     Dates: start: 20060831, end: 20060901
  2. ALBUTEROL (SALBUTAMOL) (INHALANT) [Concomitant]
  3. FLOVENT [Concomitant]
  4. COZAAR [Concomitant]
  5. SYNTHROID [Concomitant]
  6. TOPROL-XL [Concomitant]
  7. PAXIL [Concomitant]
  8. DCH (ALL OTHER THERAPEUTIC PRODUCTS) [Concomitant]
  9. FLEXERIL [Concomitant]
  10. AMBIEN [Concomitant]
  11. VIOKASE 16(PANCRELIPASE) [Concomitant]
  12. PROTONIX [Concomitant]
  13. ELAVIL [Concomitant]
  14. BENTYL [Concomitant]
  15. MEVACOR [Concomitant]
  16. ZANTAC OTC (RANITIDINE HYDROCHLORIDE) [Concomitant]
  17. NEURONTIN [Concomitant]

REACTIONS (5)
  - DYSPNOEA [None]
  - HEART RATE IRREGULAR [None]
  - HYPOAESTHESIA ORAL [None]
  - NAUSEA [None]
  - PHARYNGEAL HYPOAESTHESIA [None]
